FAERS Safety Report 7135326-4 (Version None)
Quarter: 2010Q4

REPORT INFORMATION
  Report Type: 
  Country: None (occurrence: None)
  Receive Date: 20101203
  Receipt Date: 20101123
  Transmission Date: 20110411
  Serious: Yes (Hospitalization)
  Sender: FDA-Public Use
  Company Number: B0687357A

PATIENT
  Age: 69 Year
  Sex: Male

DRUGS (2)
  1. REQUIP [Suspect]
     Indication: PARKINSONISM
     Dosage: 24MG PER DAY
     Route: 065
     Dates: start: 20100501, end: 20100601
  2. ANDROCUR [Concomitant]

REACTIONS (2)
  - DELIRIUM [None]
  - HALLUCINATION, AUDITORY [None]
